FAERS Safety Report 4571129-2 (Version None)
Quarter: 2005Q1

REPORT INFORMATION
  Report Type: 
  Country: None (occurrence: None)
  Receive Date: 20050202
  Receipt Date: 20050124
  Transmission Date: 20050727
  Serious: Yes (Other)
  Sender: FDA-Public Use
  Company Number: 200510070BVD

PATIENT
  Age: 71 Year
  Sex: Female

DRUGS (1)
  1. ALEVE [Suspect]
     Dosage: 220 MG, TOTAL DAILY, ORAL
     Route: 048
     Dates: start: 20041202, end: 20041215

REACTIONS (2)
  - CHEST DISCOMFORT [None]
  - DYSPNOEA [None]
